FAERS Safety Report 24838028 (Version 1)
Quarter: 2025Q1

REPORT INFORMATION
  Report Type: Spontaneous
  Country: US (occurrence: None)
  Receive Date: 20250112
  Receipt Date: 20250112
  Transmission Date: 20250408
  Serious: No
  Sender: FDA-CTU
  Company Number: None

PATIENT
  Age: 33 Year
  Sex: Male
  Weight: 128.25 kg

DRUGS (1)
  1. HERBALS\MITRAGYNINE [Suspect]
     Active Substance: HERBALS\MITRAGYNINE
     Indication: Analgesic therapy
     Route: 048
     Dates: start: 20241001, end: 20241016

REACTIONS (4)
  - Drug dependence [None]
  - Drug withdrawal syndrome [None]
  - Product complaint [None]
  - Drug tolerance increased [None]
